FAERS Safety Report 6838637-2 (Version None)
Quarter: 2010Q3

REPORT INFORMATION
  Report Type: 
  Country: None (occurrence: None)
  Receive Date: 20100713
  Receipt Date: 20070605
  Transmission Date: 20110219
  Serious: No
  Sender: FDA-Public Use
  Company Number: US-PFIZER INC-2007043676

PATIENT
  Sex: Female
  Weight: 77.2 kg

DRUGS (1)
  1. CHANTIX [Suspect]
     Indication: SMOKING CESSATION THERAPY
     Dates: start: 20070419, end: 20070501

REACTIONS (3)
  - CONFUSIONAL STATE [None]
  - IRRITABILITY [None]
  - NIGHTMARE [None]
